FAERS Safety Report 7874624-3 (Version None)
Quarter: 2011Q4

REPORT INFORMATION
  Report Type: 
  Country: None (occurrence: None)
  Receive Date: 20111031
  Receipt Date: 20111025
  Transmission Date: 20120403
  Serious: Yes (Death)
  Sender: FDA-Public Use
  Company Number: US-PFIZER INC-2011238780

PATIENT
  Sex: Female

DRUGS (1)
  1. REVATIO [Suspect]
     Indication: LUNG DISORDER
     Dosage: 20 MG, 3X/DAY

REACTIONS (1)
  - DEATH [None]
